FAERS Safety Report 4658387-0 (Version None)
Quarter: 2005Q2

REPORT INFORMATION
  Report Type: 
  Country: None (occurrence: None)
  Receive Date: 20050509
  Receipt Date: 20050414
  Transmission Date: 20051028
  Serious: Yes (Hospitalization)
  Sender: FDA-Public Use
  Company Number: US_0501110274

PATIENT
  Age: 1 Day
  Sex: Female

DRUGS (4)
  1. ZYPREXA [Suspect]
     Dosage: UNK
     Route: 064
  2. VALIUM [Concomitant]
  3. PAXEL (PAROXETINE HYDROCHLORIDE) [Concomitant]
     Route: 064
  4. CLONAPAM (CLONAZEPAM) [Concomitant]
     Route: 064

REACTIONS (5)
  - APGAR SCORE LOW [None]
  - CAESAREAN SECTION [None]
  - DRUG EXPOSURE DURING PREGNANCY [None]
  - FEEDING PROBLEM IN NEWBORN [None]
  - NEONATAL DISORDER [None]
